FAERS Safety Report 18074923 (Version 3)
Quarter: 2022Q1

REPORT INFORMATION
  Report Type: Spontaneous
  Country: US (occurrence: US)
  Receive Date: 20200727
  Receipt Date: 20220113
  Transmission Date: 20220423
  Serious: No
  Sender: FDA-Public Use
  Company Number: US-VERTEX PHARMACEUTICALS-2020-015198

PATIENT
  Sex: Female
  Weight: 48 kg

DRUGS (1)
  1. TRIKAFTA [Suspect]
     Active Substance: ELEXACAFTOR\IVACAFTOR\TEZACAFTOR
     Indication: Cystic fibrosis
     Dosage: 100 MG ELEXACAFTOR/ 50 MG TEZACAFTOR/ 75 MG IVACAFTOR; 150MG IVACAFTOR, TRADITIONAL DOSING
     Route: 048
     Dates: start: 20200204

REACTIONS (4)
  - Social avoidant behaviour [Recovering/Resolving]
  - Abdominal pain upper [Unknown]
  - Gastrointestinal disorder [Unknown]
  - Stress [Unknown]

NARRATIVE: CASE EVENT DATE: 20200101
